FAERS Safety Report 7296072-X (Version None)
Quarter: 2011Q1

REPORT INFORMATION
  Report Type: 
  Country: None (occurrence: None)
  Receive Date: 20110216
  Receipt Date: 20110207
  Transmission Date: 20110831
  Serious: Yes (Other)
  Sender: FDA-Public Use
  Company Number: US-ROCHE-757871

PATIENT
  Age: 70 Year
  Sex: Male

DRUGS (4)
  1. BEVACIZUMAB [Suspect]
     Route: 065
  2. BEVACIZUMAB [Suspect]
     Dosage: TREATED FOR 6 MONTHS
     Route: 065
  3. CAPECITABINE [Suspect]
     Dosage: TREATED FOR 1YEAR
     Route: 065
  4. CAPECITABINE [Suspect]
     Route: 065

REACTIONS (1)
  - IMPAIRED HEALING [None]
